FAERS Safety Report 10724509 (Version 2)
Quarter: 2015Q1

REPORT INFORMATION
  Report Type: Spontaneous
  Country: US (occurrence: US)
  Receive Date: 20150120
  Receipt Date: 20150123
  Transmission Date: 20150721
  Serious: No
  Sender: FDA-Public Use
  Company Number: US-PFIZER INC-2015018983

PATIENT
  Age: 33 Year
  Sex: Female
  Weight: 91 kg

DRUGS (7)
  1. KLONOPIN [Concomitant]
     Active Substance: CLONAZEPAM
     Indication: PANIC ATTACK
     Dosage: 0.5 MG, 1X/DAY, UT IF SHE HAD A PANIC ATTACK SHE COULD TAKE ANOTHER PILL
     Route: 048
  2. LAMOTRIGINE. [Concomitant]
     Active Substance: LAMOTRIGINE
     Dosage: 100 MG, 1X/DAY
     Route: 048
  3. HALCION [Concomitant]
     Active Substance: TRIAZOLAM
     Dosage: 0.5 MG, 1X/DAY AT BEDTIME
     Route: 048
  4. ADDERALL [Concomitant]
     Active Substance: AMPHETAMINE ASPARTATE\AMPHETAMINE SULFATE\DEXTROAMPHETAMINE SACCHARATE\DEXTROAMPHETAMINE SULFATE
     Dosage: 30MG IN THE MORNING AND 20MG AT DINNERTIME, TOTAL OF 50MG PER DAY
  5. ZIPRASIDONE HCL [Suspect]
     Active Substance: ZIPRASIDONE HYDROCHLORIDE
     Dosage: 60 MG, 1X/DAY (AT BEDTIME)
     Route: 048
  6. CELEBREX [Concomitant]
     Active Substance: CELECOXIB
     Dosage: 200 MG, 1X/DAY IN THE MORNING
  7. SOMA [Concomitant]
     Active Substance: CARISOPRODOL
     Indication: MUSCLE SPASMS
     Dosage: 350MG PILL, ONCE A DAY, COULD TAKE UP TO 2 PILLS A DAY

REACTIONS (10)
  - Oesophageal pain [Not Recovered/Not Resolved]
  - Ocular discomfort [Recovering/Resolving]
  - Muscle spasms [Unknown]
  - Dyspnoea [Unknown]
  - Pharyngeal oedema [Not Recovered/Not Resolved]
  - Urticaria [Not Recovered/Not Resolved]
  - Vision blurred [Unknown]
  - Dyspepsia [Not Recovered/Not Resolved]
  - Lymphadenopathy [Not Recovered/Not Resolved]
  - Reaction to drug excipients [Unknown]

NARRATIVE: CASE EVENT DATE: 201501
